FAERS Safety Report 19853470 (Version 1)
Quarter: 2021Q3

REPORT INFORMATION
  Report Type: Report from Study
  Country: AR (occurrence: AR)
  Receive Date: 20210919
  Receipt Date: 20210919
  Transmission Date: 20211014
  Serious: Yes (Other)
  Sender: FDA-Public Use
  Company Number: NVSC2021AR088579

PATIENT
  Age: 7 Year
  Sex: Female

DRUGS (3)
  1. OMNITROPE [Suspect]
     Active Substance: SOMATROPIN
     Dosage: 0.7 MG, QD (SOLUTION)
     Route: 058
     Dates: start: 20200207
  2. OMNITROPE [Suspect]
     Active Substance: SOMATROPIN
     Dosage: 0.8 (UNITS NOT PROVIDED), QD (SOLUTION)
     Route: 058
  3. OMNITROPE [Suspect]
     Active Substance: SOMATROPIN
     Indication: GROWTH HORMONE DEFICIENCY
     Dosage: 1 MG, QD (SOLUTION)
     Route: 058
     Dates: start: 20200207

REACTIONS (4)
  - Hyperthyroidism [Unknown]
  - COVID-19 [Unknown]
  - Incorrect dose administered [Unknown]
  - Weight decreased [Unknown]

NARRATIVE: CASE EVENT DATE: 20201213
